FAERS Safety Report 5305431-3 (Version None)
Quarter: 2007Q2

REPORT INFORMATION
  Report Type: 
  Country: None (occurrence: None)
  Receive Date: 20070416
  Receipt Date: 20070402
  Transmission Date: 20071010
  Serious: Yes (Other)
  Sender: FDA-Public Use
  Company Number: 2007RR-06686

PATIENT
  Age: 63 Year
  Sex: Female

DRUGS (6)
  1. CIPROFLOXACIN [Suspect]
     Indication: CROHN'S DISEASE
     Dosage: 500 MG, QD
     Dates: start: 20000701
  2. METFORMIN HYDROCHLORIDE [Concomitant]
  3. ATORVASTATIN CALCIUM [Concomitant]
  4. BUDESONIDE [Concomitant]
  5. ORNIDAZOL [Concomitant]
  6. SULFASALAZIN [Concomitant]

REACTIONS (4)
  - CHOLANGIOLITIS [None]
  - HEPATITIS CHOLESTATIC [None]
  - HEPATOMEGALY [None]
  - PANCREATITIS CHRONIC [None]
